FAERS Safety Report 9721661 (Version 1)
Quarter: 2013Q4

REPORT INFORMATION
  Report Type: Report from Study
  Country: US (occurrence: US)
  Receive Date: 20131201
  Receipt Date: 20131201
  Transmission Date: 20140711
  Serious: No
  Sender: FDA-Public Use
  Company Number: US-ABBVIE-13P-163-1160332-00

PATIENT
  Age: 36 Year
  Sex: Male

DRUGS (6)
  1. ANDROGEL [Suspect]
     Indication: TESTICULAR FAILURE
     Route: 061
     Dates: start: 201206, end: 201309
  2. ANDROGEL [Suspect]
     Indication: TESTICULAR FAILURE
     Dosage: 5 GRAM PACKET
     Route: 061
     Dates: start: 2003, end: 201206
  3. ADDERALL [Concomitant]
     Indication: PRODUCT USED FOR UNKNOWN INDICATION
  4. CLONAZEPAM [Concomitant]
     Indication: PRODUCT USED FOR UNKNOWN INDICATION
  5. MORPHINE [Concomitant]
     Indication: PRODUCT USED FOR UNKNOWN INDICATION
  6. OXYCODONE [Concomitant]
     Indication: PRODUCT USED FOR UNKNOWN INDICATION

REACTIONS (4)
  - Arthralgia [Not Recovered/Not Resolved]
  - Asthenia [Not Recovered/Not Resolved]
  - Fatigue [Not Recovered/Not Resolved]
  - Tremor [Not Recovered/Not Resolved]
